FAERS Safety Report 5938539-X (Version None)
Quarter: 2008Q4

REPORT INFORMATION
  Report Type: 
  Country: None (occurrence: None)
  Receive Date: 20081103
  Receipt Date: 20081022
  Transmission Date: 20090506
  Serious: Yes (Disabling, Other)
  Sender: FDA-Public Use
  Company Number: PHHY2008FI25886

PATIENT
  Sex: Male

DRUGS (11)
  1. ZOMETA [Suspect]
     Indication: PROSTATE CANCER
     Dosage: 4 MG, QW4
     Dates: start: 20060607, end: 20080403
  2. ZOMETA [Suspect]
     Indication: METASTASES TO BONE
  3. PROCRIN [Concomitant]
     Indication: PROSTATE CANCER
     Dosage: 11.25MG EVERY 12 WEEKS
  4. PROCRIN [Concomitant]
     Indication: METASTASES TO BONE
  5. DURAGESIC-100 [Concomitant]
     Indication: PAIN
     Dosage: 16.67 MICROG
  6. BISOPROLOL FUMARATE [Concomitant]
     Indication: HYPERTENSION
     Dosage: 10MG
  7. ADALAT [Concomitant]
     Indication: HYPERTENSION
     Dosage: 60MG
  8. SPIRESIS [Concomitant]
     Indication: HYPERTENSION
     Dosage: 50MG
  9. LINATIL [Concomitant]
     Indication: HYPERTENSION
     Dosage: 10MG
  10. DUPHALAC [Concomitant]
     Indication: CONSTIPATION
     Dosage: 20MLS
  11. PRIMPERAN [Concomitant]
     Indication: MALAISE
     Dosage: 30MG

REACTIONS (6)
  - BLOOD CREATININE INCREASED [None]
  - CONDITION AGGRAVATED [None]
  - OSTEONECROSIS [None]
  - PROSTATIC SPECIFIC ANTIGEN INCREASED [None]
  - TOOTH EXTRACTION [None]
  - TOOTH FRACTURE [None]
